FAERS Safety Report 4490086-0 (Version None)
Quarter: 2004Q4

REPORT INFORMATION
  Report Type: 
  Country: None (occurrence: None)
  Receive Date: 20041027
  Receipt Date: 20041015
  Transmission Date: 20050328
  Serious: Yes (Death)
  Sender: FDA-Public Use
  Company Number: 2004079107

PATIENT
  Sex: Male
  Weight: 90.7194 kg

DRUGS (1)
  1. DIPHENHYDRAMINE HCL [Suspect]
     Indication: INTENTIONAL OVERDOSE
     Dosage: OVER 100 ^KAPSEALS^, ORAL
     Route: 048

REACTIONS (2)
  - INTENTIONAL MISUSE [None]
  - INTENTIONAL OVERDOSE [None]
